FAERS Safety Report 19732030 (Version 2)
Quarter: 2021Q4

REPORT INFORMATION
  Report Type: Report from Study
  Country: US (occurrence: US)
  Receive Date: 20210820
  Receipt Date: 20211012
  Transmission Date: 20220304
  Serious: Yes (Other)
  Sender: FDA-Public Use
  Company Number: US-JAZZ-JPI-P-016378

PATIENT
  Age: 50 Year
  Sex: Female
  Weight: 63.64 kg

DRUGS (10)
  1. XYREM [Suspect]
     Active Substance: SODIUM OXYBATE
     Indication: Narcolepsy
     Dosage: 2.25 GRAM, BID
     Route: 048
     Dates: start: 20110715, end: 201109
  2. XYREM [Suspect]
     Active Substance: SODIUM OXYBATE
     Indication: Cataplexy
     Dosage: DOSE ADJUSTMENT
     Route: 048
     Dates: start: 201109, end: 201412
  3. XYREM [Suspect]
     Active Substance: SODIUM OXYBATE
     Dosage: 3.25 GRAM, BID
     Route: 048
     Dates: start: 201412
  4. LEVOTHYROXINE [Concomitant]
     Active Substance: LEVOTHYROXINE
  5. LAMOTRIGINE [Concomitant]
     Active Substance: LAMOTRIGINE
  6. TIMOLOL [Concomitant]
     Active Substance: TIMOLOL
  7. ADDERALL [Concomitant]
     Active Substance: AMPHETAMINE ASPARTATE\AMPHETAMINE SULFATE\DEXTROAMPHETAMINE SACCHARATE\DEXTROAMPHETAMINE SULFATE
  8. FLUTICASONE [Concomitant]
     Active Substance: FLUTICASONE
  9. VITAMIN D3 [Concomitant]
     Active Substance: CHOLECALCIFEROL
  10. CLEOCIN T [Concomitant]
     Active Substance: CLINDAMYCIN PHOSPHATE

REACTIONS (10)
  - Peripheral sensory neuropathy [Not Recovered/Not Resolved]
  - Vasodilatation [Recovered/Resolved]
  - Chapped lips [Unknown]
  - Mouth ulceration [Recovering/Resolving]
  - Feeling hot [Recovered/Resolved]
  - Hypoaesthesia [Recovering/Resolving]
  - Paraesthesia [Recovered/Resolved]
  - Peripheral swelling [Recovered/Resolved]
  - Sunburn [Unknown]
  - Hypersensitivity [Recovered/Resolved]

NARRATIVE: CASE EVENT DATE: 20110724
